FAERS Safety Report 15200481 (Version 1)
Quarter: 2018Q3

REPORT INFORMATION
  Report Type: Spontaneous
  Country: US (occurrence: US)
  Receive Date: 20180726
  Receipt Date: 20180726
  Transmission Date: 20181010
  Serious: No
  Sender: FDA-Public Use
  Company Number: US-SHIRE-US201827514

PATIENT
  Sex: Male

DRUGS (1)
  1. XIIDRA [Suspect]
     Active Substance: LIFITEGRAST
     Indication: EYE INFECTION
     Dosage: 2 GTT, 2 DROPS A DAY IN EACH EYE, 1X/DAY:QD
     Route: 047
     Dates: start: 201805

REACTIONS (4)
  - Instillation site pustules [Unknown]
  - Vision blurred [Unknown]
  - Product leakage [Unknown]
  - Instillation site reaction [Unknown]
